FAERS Safety Report 4905308-9 (Version None)
Quarter: 2006Q1

REPORT INFORMATION
  Report Type: 
  Country: None (occurrence: None)
  Receive Date: 20060203
  Receipt Date: 20060118
  Transmission Date: 20060701
  Serious: Yes (Other)
  Sender: FDA-Public Use
  Company Number: GXKR2006NL00519

PATIENT
  Age: 29 Year
  Sex: Male

DRUGS (3)
  1. TRAMADOL HCL [Suspect]
     Indication: PAIN
     Dosage: 100 MG, QD, ORAL
     Route: 048
     Dates: start: 20051026, end: 20051222
  2. CELEBREX [Suspect]
     Indication: PAIN
     Dosage: 100 MG, QD, ORAL
     Route: 048
     Dates: start: 20040101
  3. TEMAZEPAM [Concomitant]

REACTIONS (4)
  - EYE PAIN [None]
  - VISION BLURRED [None]
  - VISUAL ACUITY REDUCED [None]
  - VISUAL DISTURBANCE [None]
